FAERS Safety Report 4311179-4 (Version None)
Quarter: 2004Q1

REPORT INFORMATION
  Report Type: 
  Country: None (occurrence: None)
  Receive Date: 20040302
  Receipt Date: 20040302
  Transmission Date: 20041129
  Serious: No
  Sender: FDA-Public Use
  Company Number: None

PATIENT
  Sex: Female
  Weight: 77 kg

DRUGS (7)
  1. KYTRIL [Suspect]
     Indication: PROPHYLAXIS OF NAUSEA AND VOMITING
     Dosage: 1 MG DAILY ORAL
     Route: 048
     Dates: start: 20040206, end: 20040207
  2. FLUCONAZOLE [Concomitant]
  3. GATIFLOXACIN [Concomitant]
  4. ACYCLOVIR [Concomitant]
  5. ALLOPURINOL [Concomitant]
  6. DEXAMETHASONE [Concomitant]
  7. MEDROXYPROGESTERONE [Concomitant]

REACTIONS (1)
  - BRADYCARDIA [None]
